FAERS Safety Report 13363720 (Version 2)
Quarter: 2017Q2

REPORT INFORMATION
  Report Type: Spontaneous
  Country: US (occurrence: US)
  Receive Date: 20170323
  Receipt Date: 20170407
  Transmission Date: 20170830
  Serious: No
  Sender: FDA-Public Use
  Company Number: US-HORIZON-ACT-0056-2017

PATIENT
  Age: 42 Year
  Sex: Male

DRUGS (5)
  1. BACTRIM [Concomitant]
     Active Substance: SULFAMETHOXAZOLE\TRIMETHOPRIM
  2. ALLEGRA [Concomitant]
     Active Substance: FEXOFENADINE HYDROCHLORIDE
  3. ITRACONAZOLE. [Concomitant]
     Active Substance: ITRACONAZOLE
  4. RANITIDINE. [Concomitant]
     Active Substance: RANITIDINE
  5. ACTIMMUNE [Suspect]
     Active Substance: INTERFERON GAMMA-1B
     Indication: CHRONIC GRANULOMATOUS DISEASE
     Dosage: 115 ?G TIW
     Dates: start: 20120123

REACTIONS (4)
  - Fatigue [Recovering/Resolving]
  - Feeling abnormal [Not Recovered/Not Resolved]
  - Intentional product misuse [Unknown]
  - Respiratory tract infection viral [Recovering/Resolving]

NARRATIVE: CASE EVENT DATE: 201703
